FAERS Safety Report 5971667-1 (Version None)
Quarter: 2008Q4

REPORT INFORMATION
  Report Type: 
  Country: None (occurrence: None)
  Receive Date: 20081201
  Receipt Date: 20081124
  Transmission Date: 20090506
  Serious: Yes (Other)
  Sender: FDA-Public Use
  Company Number: US-BAYER-200839353NA

PATIENT
  Sex: Female

DRUGS (1)
  1. AVELOX [Suspect]
     Indication: UNEVALUABLE EVENT
     Dosage: UNIT DOSE: 400 MG
     Route: 048
     Dates: start: 20081119, end: 20081119

REACTIONS (6)
  - ERYTHEMA [None]
  - FEELING HOT [None]
  - HYPERSENSITIVITY [None]
  - LIP SWELLING [None]
  - PRURITUS [None]
  - THROAT TIGHTNESS [None]
